FAERS Safety Report 22627182 (Version 1)
Quarter: 2023Q2

REPORT INFORMATION
  Report Type: Spontaneous
  Country: DE (occurrence: DE)
  Receive Date: 20230622
  Receipt Date: 20230622
  Transmission Date: 20230721
  Serious: Yes (Other)
  Sender: FDA-Public Use
  Company Number: DE-002147023-NVSC2023DE138885

PATIENT
  Age: 60 Year
  Sex: Female

DRUGS (3)
  1. RANIBIZUMAB [Suspect]
     Active Substance: RANIBIZUMAB
     Indication: Diabetic retinal oedema
     Dosage: UNK UNK, Q4W (MEDICINAL APPLICATION (IVOM)OF LEFT EYE)
     Route: 050
     Dates: start: 2018, end: 2019
  2. RANIBIZUMAB [Suspect]
     Active Substance: RANIBIZUMAB
     Dosage: UNK, Q4W (MEDICINAL APPLICATION (IVOM)OF LEFT EYE)
     Route: 050
  3. AFLIBERCEPT [Concomitant]
     Active Substance: AFLIBERCEPT
     Indication: Diabetic retinal oedema
     Dosage: UNK, (MEDICINAL APPLICATION (IVOM)OF LEFT EYE)

REACTIONS (6)
  - Female reproductive neoplasm [Unknown]
  - Macular oedema [Unknown]
  - Diabetic retinal oedema [Unknown]
  - COVID-19 [Unknown]
  - Visual acuity reduced [Unknown]
  - Drug ineffective [Unknown]

NARRATIVE: CASE EVENT DATE: 20190101
